FAERS Safety Report 6770831-1 (Version None)
Quarter: 2010Q2

REPORT INFORMATION
  Report Type: 
  Country: None (occurrence: None)
  Receive Date: 20100614
  Receipt Date: 20100614
  Transmission Date: 20101027
  Serious: No
  Sender: FDA-Public Use
  Company Number: None

PATIENT

DRUGS (2)
  1. SIMVASTATIN [Suspect]
     Dates: start: 20050101
  2. CYCLOBENZAPRINE [Suspect]
     Dates: start: 20050101

REACTIONS (8)
  - ARTHROPATHY [None]
  - EXERCISE TOLERANCE DECREASED [None]
  - LIGAMENT DISORDER [None]
  - LIGAMENT RUPTURE [None]
  - MUSCULAR WEAKNESS [None]
  - MYALGIA [None]
  - VISUAL ACUITY REDUCED [None]
  - VISUAL IMPAIRMENT [None]
